FAERS Safety Report 18250064 (Version 1)
Quarter: 2020Q3

REPORT INFORMATION
  Report Type: Spontaneous
  Country: ES (occurrence: ES)
  Receive Date: 20200910
  Receipt Date: 20200910
  Transmission Date: 20201103
  Serious: Yes (Disabling, Other)
  Sender: FDA-Public Use
  Company Number: NVSC2020ES245965

PATIENT
  Age: 55 Year
  Sex: Male
  Weight: 65 kg

DRUGS (1)
  1. OXCARBAZEPINE. [Suspect]
     Active Substance: OXCARBAZEPINE
     Indication: IMPULSE-CONTROL DISORDER
     Dosage: 600 MG, QD
     Route: 048
     Dates: start: 2008

REACTIONS (1)
  - Scrotal ulcer [Recovered/Resolved]

NARRATIVE: CASE EVENT DATE: 2009
